FAERS Safety Report 9158673 (Version 3)
Quarter: 2013Q2

REPORT INFORMATION
  Report Type: Spontaneous
  Country: US (occurrence: US)
  Receive Date: 20130312
  Receipt Date: 20130510
  Transmission Date: 20140414
  Serious: Yes (Hospitalization, Other)
  Sender: FDA-Public Use
  Company Number: US-PFIZER INC-2013084660

PATIENT
  Age: 81 Year
  Sex: Male
  Weight: 89 kg

DRUGS (12)
  1. IBUPROFEN [Suspect]
     Indication: ARTHRALGIA
     Route: 065
  2. XARELTO [Suspect]
     Indication: CEREBROVASCULAR ACCIDENT PROPHYLAXIS
     Dosage: 20 MG, 1X/DAY
     Dates: start: 20121224, end: 20130111
  3. XARELTO [Suspect]
     Indication: ATRIAL FIBRILLATION
  4. MULTAQ [Suspect]
     Indication: ATRIAL FIBRILLATION
     Dosage: 400 MG, 2X/DAY
     Route: 048
     Dates: start: 20121224
  5. ALEVE [Suspect]
     Indication: ARTHRALGIA
     Route: 065
  6. ASPIRIN [Suspect]
     Indication: ARTHRALGIA
     Dosage: UNK
     Route: 065
  7. ASPIRIN [Suspect]
     Indication: CARDIOVASCULAR EVENT PROPHYLAXIS
     Dosage: 81MG DAILY
     Route: 065
  8. FERROUS SULFATE [Concomitant]
     Dosage: 325 MG, UNK
     Route: 048
  9. METOPROLOL TARTRATE [Concomitant]
     Dosage: 12.5 MG, 2X/DAY
     Route: 048
  10. PROTONIX [Concomitant]
     Dosage: 40 MG, 2X/DAY
     Route: 048
  11. ALPRAZOLAM [Concomitant]
     Dosage: 0.5 MG, UNK
     Route: 048
  12. LOVASTATIN [Concomitant]
     Dosage: 40MG
     Route: 048

REACTIONS (5)
  - Gastrointestinal haemorrhage [Recovering/Resolving]
  - Melaena [Recovering/Resolving]
  - Duodenal ulcer [Recovering/Resolving]
  - Rectal haemorrhage [Unknown]
  - Dizziness [Unknown]
